FAERS Safety Report 24214460 (Version 1)
Quarter: 2024Q3

REPORT INFORMATION
  Report Type: Spontaneous
  Country: US (occurrence: US)
  Receive Date: 20240815
  Receipt Date: 20240815
  Transmission Date: 20241017
  Serious: No
  Sender: MERCK
  Company Number: US-009507513-2408USA004934

PATIENT
  Sex: Female
  Weight: 73 kg

DRUGS (1)
  1. CUBICIN [Suspect]
     Active Substance: DAPTOMYCIN
     Indication: Staphylococcal infection
     Dosage: 750?MG AS AN INFUSION OVER 30?MIN EVERY 24?H

REACTIONS (1)
  - Off label use [Unknown]
